FAERS Safety Report 15387786 (Version 1)
Quarter: 2018Q3

REPORT INFORMATION
  Report Type: Spontaneous
  Country: JP (occurrence: JP)
  Receive Date: 20180914
  Receipt Date: 20180914
  Transmission Date: 20181010
  Serious: Yes (Death, Life-Threatening, Hospitalization)
  Sender: FDA-Public Use
  Company Number: JP-B.I. PHARMACEUTICALS,INC./RIDGEFIELD-2018-NB-004222

PATIENT
  Age: 70 Year
  Sex: Female

DRUGS (2)
  1. PRAZAXA [Suspect]
     Active Substance: DABIGATRAN ETEXILATE MESYLATE
     Indication: PRODUCT USED FOR UNKNOWN INDICATION
     Dosage: ON 01 AUG 2018, IN THE MORNING, THE PATIENT TOOK PRAZAXA.
     Route: 048
     Dates: end: 20180801
  2. PRAZAXA [Suspect]
     Active Substance: DABIGATRAN ETEXILATE MESYLATE
     Route: 048
     Dates: start: 20180806, end: 20180816

REACTIONS (3)
  - Pulmonary alveolar haemorrhage [Recovered/Resolved]
  - Pulmonary alveolar haemorrhage [Unknown]
  - Vasculitis [Fatal]

NARRATIVE: CASE EVENT DATE: 20180725
